FAERS Safety Report 4639855-4 (Version None)
Quarter: 2005Q2

REPORT INFORMATION
  Report Type: 
  Country: None (occurrence: None)
  Receive Date: 20050418
  Receipt Date: 20050405
  Transmission Date: 20051028
  Serious: Yes (Hospitalization)
  Sender: FDA-Public Use
  Company Number: 2005024265

PATIENT
  Age: 59 Year
  Sex: Male
  Weight: 57 kg

DRUGS (13)
  1. CLINDAMYCIN PHOSPHATE [Suspect]
     Indication: NASOPHARYNGITIS
     Dosage: 1200 MG (600 MG, 2 IN 1 D), INTRAVENOUS
     Route: 042
     Dates: start: 20040424, end: 20040427
  2. CLINDAMYCIN [Suspect]
     Indication: ILL-DEFINED DISORDER
     Dosage: 600 M (600 MG, 1 IN 1 D), INTRAVENOUS
     Route: 042
     Dates: start: 20040416
  3. CEFCAPENE PIVOXIL HYDROCHLORIDE [Concomitant]
  4. HUSCODE  (CHLORPHENAMINE MALEATE, DIHYDROCODEIN PHOS,METHYLEPHEDRINE [Concomitant]
  5. WILD CHERRY BARK (WILD CHERRY BARK) [Concomitant]
  6. ACETAMINOPHEN [Concomitant]
  7. DICLOFENAC SODIUM [Concomitant]
  8. LEVOFLOXACIN [Concomitant]
  9. LOXOPROFEN SODIUM (LOXOPROFEN SODIUM) [Concomitant]
  10. SERRAPEPTASE (SERRAPEPTASE) [Concomitant]
  11. DEXTROMETHORPHAN HYDROBROMIDE (DEXTROMETHORPHAN HYDROBROMIDE) [Concomitant]
  12. UNACID (AMPICILLIN SODIUM, SULBACTAM SODIUM) [Concomitant]
  13. ALL OTHER THERAPEUTIC PRODUCTS [Concomitant]

REACTIONS (4)
  - DEHYDRATION [None]
  - HYPOTENSION [None]
  - INTERSTITIAL LUNG DISEASE [None]
  - RASH GENERALISED [None]
